FAERS Safety Report 6544663-3 (Version None)
Quarter: 2010Q1

REPORT INFORMATION
  Report Type: 
  Country: None (occurrence: None)
  Receive Date: 20100120
  Receipt Date: 20100120
  Transmission Date: 20100710
  Serious: No
  Sender: FDA-Public Use
  Company Number: None

PATIENT
  Age: 75 Year
  Sex: Female

DRUGS (1)
  1. XOPENEX [Suspect]
     Dosage: ONE NEBULE THREE TIMES DAILY INHAL
     Route: 055
     Dates: start: 20090112, end: 20100114

REACTIONS (2)
  - SWOLLEN TONGUE [None]
  - THROAT IRRITATION [None]
